FAERS Safety Report 9192373 (Version 2)
Quarter: 2013Q4

REPORT INFORMATION
  Report Type: Spontaneous
  Country: US (occurrence: US)
  Receive Date: 20130327
  Receipt Date: 20131127
  Transmission Date: 20140711
  Serious: Yes (Other)
  Sender: FDA-Public Use
  Company Number: US-BAYER-2013-038411

PATIENT
  Age: 33 Year
  Sex: Female

DRUGS (4)
  1. YAZ [Suspect]
  2. YASMIN [Suspect]
  3. OCELLA [Suspect]
  4. MIRAPEX [Concomitant]
     Dosage: 1 MG, UNK
     Route: 048
     Dates: start: 20111220

REACTIONS (6)
  - Gallbladder injury [None]
  - Cholecystitis [None]
  - Biliary dyskinesia [None]
  - Injury [None]
  - Pain [None]
  - Pain [None]
